FAERS Safety Report 21776718 (Version 2)
Quarter: 2022Q4

REPORT INFORMATION
  Report Type: Spontaneous
  Country: US (occurrence: US)
  Receive Date: 20221226
  Receipt Date: 20221226
  Transmission Date: 20230113
  Serious: No
  Sender: FDA-Public Use
  Company Number: US-COLLEGIUM PHARMACEUTICAL, INC.-2022CGM00113

PATIENT
  Sex: Male

DRUGS (2)
  1. NUCYNTA [Suspect]
     Active Substance: TAPENTADOL HYDROCHLORIDE
     Dosage: 100 MG, 3X/DAY
     Dates: start: 2013, end: 202104
  2. NUCYNTA [Suspect]
     Active Substance: TAPENTADOL HYDROCHLORIDE

REACTIONS (1)
  - Drug abuser [Recovered/Resolved]
